FAERS Safety Report 8779293 (Version 1)
Quarter: 2012Q4

REPORT INFORMATION
  Report Type: 
  Country: KR (occurrence: KR)
  Receive Date: 20120911
  Receipt Date: 20120911
  Transmission Date: 20130627
  Serious: Yes (Hospitalization)
  Sender: FDA-Public Use
  Company Number: KR-ELI_LILLY_AND_COMPANY-KR201209000968

PATIENT
  Age: 58 Year
  Sex: Male

DRUGS (1)
  1. HUMALOG MIX75/25 [Suspect]
     Indication: TYPE 2 DIABETES MELLITUS
     Dosage: 20 u, each morning
     Dates: start: 20120401

REACTIONS (1)
  - Herpes zoster [Recovered/Resolved]
